FAERS Safety Report 7342423-7 (Version None)
Quarter: 2011Q1

REPORT INFORMATION
  Report Type: 
  Country: None (occurrence: None)
  Receive Date: 20110228
  Receipt Date: 20110208
  Transmission Date: 20110831
  Serious: Yes (Death)
  Sender: FDA-Public Use
  Company Number: 2011020095

PATIENT
  Age: 32 Year
  Sex: Female

DRUGS (7)
  1. CARISOPRODOL (CARISOPRODOL) [Suspect]
     Dosage: ORAL
     Route: 048
  2. ONDANSETRON [Suspect]
     Dosage: ORAL
     Route: 048
  3. TIZANIDINE (TIZANIDINE) [Suspect]
     Dosage: ORAL
     Route: 048
  4. PROMETHAZINE [Suspect]
     Dosage: ORAL
     Route: 048
  5. NORTRIPTYLINE (NORTRIPTYLINE) [Suspect]
     Dosage: ORAL
     Route: 048
  6. PHENOTHIAZINE (PHENOTHIAZINE) [Suspect]
     Dosage: ORAL
     Route: 048
  7. MIRTAZAPINE [Suspect]
     Dosage: ORAL
     Route: 048

REACTIONS (1)
  - DEATH [None]
